FAERS Safety Report 15268637 (Version 2)
Quarter: 2019Q1

REPORT INFORMATION
  Report Type: Report from Study
  Country: CL (occurrence: CL)
  Receive Date: 20180812
  Receipt Date: 20190301
  Transmission Date: 20190417
  Serious: Yes (Other)
  Sender: FDA-Public Use
  Company Number: CL-BRISTOL-MYERS SQUIBB COMPANY-BMS-2018-071608

PATIENT
  Age: 65 Year
  Sex: Female

DRUGS (2)
  1. METHOTREXATE. [Suspect]
     Active Substance: METHOTREXATE
     Indication: PRODUCT USED FOR UNKNOWN INDICATION
     Route: 065
  2. ABATACEPT [Suspect]
     Active Substance: ABATACEPT
     Indication: RHEUMATOID ARTHRITIS
     Dosage: UNK, QWK
     Route: 065
     Dates: start: 20171121

REACTIONS (7)
  - Drug ineffective [Unknown]
  - Swelling [Recovering/Resolving]
  - Limb mass [Unknown]
  - Hepatic mass [Recovering/Resolving]
  - Injection site pain [Recovering/Resolving]
  - Finger deformity [Unknown]
  - Hepatitis [Unknown]

NARRATIVE: CASE EVENT DATE: 20190219
